FAERS Safety Report 7115232-1 (Version None)
Quarter: 2010Q4

REPORT INFORMATION
  Report Type: 
  Country: None (occurrence: None)
  Receive Date: 20101122
  Receipt Date: 20101118
  Transmission Date: 20110411
  Serious: Yes (Death, Hospitalization, Other)
  Sender: FDA-Public Use
  Company Number: PHHY2010MX38849

PATIENT
  Sex: Female

DRUGS (2)
  1. DIOVAN [Suspect]
     Indication: HYPERTENSION
     Dosage: 1 TABLET (160 MG) PER DAY
     Route: 048
  2. GALVUS [Suspect]
     Indication: DIABETES MELLITUS
     Dosage: 50 MG PER DAY
     Dates: start: 20090401

REACTIONS (7)
  - BLOOD GLUCOSE INCREASED [None]
  - CEREBROVASCULAR ACCIDENT [None]
  - GAIT DISTURBANCE [None]
  - INFECTION [None]
  - RENAL FAILURE [None]
  - RENAL IMPAIRMENT [None]
  - VISION BLURRED [None]
